FAERS Safety Report 5009046-6 (Version None)
Quarter: 2006Q2

REPORT INFORMATION
  Report Type: 
  Country: None (occurrence: None)
  Receive Date: 20060519
  Receipt Date: 20060509
  Transmission Date: 20061013
  Serious: Yes (Hospitalization)
  Sender: FDA-Public Use
  Company Number: 2006BI006824

PATIENT
  Sex: Female

DRUGS (1)
  1. AVONEX [Suspect]
     Dosage: IM
     Route: 030
     Dates: start: 20040401

REACTIONS (5)
  - BURSITIS [None]
  - NECK INJURY [None]
  - NECK PAIN [None]
  - PAIN [None]
  - SHOULDER PAIN [None]
